FAERS Safety Report 6063520-2 (Version None)
Quarter: 2009Q1

REPORT INFORMATION
  Report Type: 
  Country: None (occurrence: None)
  Receive Date: 20090203
  Receipt Date: 20090122
  Transmission Date: 20090719
  Serious: Yes (Death)
  Sender: FDA-Public Use
  Company Number: US-ELI_LILLY_AND_COMPANY-US200901004159

PATIENT
  Age: 28 Year

DRUGS (3)
  1. OLANZAPINE [Suspect]
  2. AMITRIPTYLINE HCL [Concomitant]
  3. ESCITALOPRAM [Concomitant]

REACTIONS (1)
  - COMPLETED SUICIDE [None]
